FAERS Safety Report 16872513 (Version 1)
Quarter: 2019Q4

REPORT INFORMATION
  Report Type: Spontaneous
  Country: US (occurrence: US)
  Receive Date: 20190807
  Receipt Date: 20190807
  Transmission Date: 20200122
  Serious: No
  Sender: FDA-Public Use
  Company Number: None

PATIENT

DRUGS (2)
  1. TRAZODONE [Suspect]
     Active Substance: TRAZODONE HYDROCHLORIDE
  2. TRAMADOL. [Suspect]
     Active Substance: TRAMADOL

REACTIONS (3)
  - Transcription medication error [None]
  - Product dispensing error [None]
  - Wrong product administered [None]
